FAERS Safety Report 4355937-9 (Version None)
Quarter: 2004Q2

REPORT INFORMATION
  Report Type: 
  Country: None (occurrence: None)
  Receive Date: 20040507
  Receipt Date: 20040507
  Transmission Date: 20050107
  Serious: Yes (Life-Threatening)
  Sender: FDA-Public Use
  Company Number: None

PATIENT
  Age: 53 Year
  Sex: Male

DRUGS (6)
  1. GATIFLOXACIN [Suspect]
     Indication: PERITONITIS BACTERIAL
     Dosage: 200-400 MG DAILY ORAL
     Route: 048
     Dates: start: 20040218, end: 20040225
  2. GATIFLOXACIN [Suspect]
     Indication: PROPHYLAXIS
     Dosage: 200-400 MG DAILY ORAL
     Route: 048
     Dates: start: 20040218, end: 20040225
  3. MIDODRINE HCL [Concomitant]
  4. DEXAMETHASONE [Concomitant]
  5. FLUOXETINE [Concomitant]
  6. RABEPRAZOLE SODIUM [Concomitant]

REACTIONS (3)
  - DYSPNOEA EXERTIONAL [None]
  - ELECTROCARDIOGRAM QT PROLONGED [None]
  - RENAL FAILURE ACUTE [None]
